FAERS Safety Report 16912867 (Version 1)
Quarter: 2019Q4

REPORT INFORMATION
  Report Type: Spontaneous
  Country: NL (occurrence: NL)
  Receive Date: 20191014
  Receipt Date: 20191014
  Transmission Date: 20200122
  Serious: Yes (Hospitalization)
  Sender: FDA-Public Use
  Company Number: NL-009507513-1910NLD006432

PATIENT
  Age: 21 Year
  Sex: Female
  Weight: 123 kg

DRUGS (6)
  1. NAPROXEN. [Concomitant]
     Active Substance: NAPROXEN
     Dosage: IF NEEDED 2 TIMES A DAY 1 TABLET MAXIMAL
     Route: 048
     Dates: start: 20140813
  2. IBUPROFEN. [Concomitant]
     Active Substance: IBUPROFEN
     Dosage: 3 TIMES A DAY 1 TABLET
     Route: 048
     Dates: start: 20190515
  3. MIDAZOLAM [Concomitant]
     Active Substance: MIDAZOLAM HYDROCHLORIDE
     Dosage: IF NEEDED 1 TIME 4 PUFFS (2 IN EACH NOSTRIL)
     Route: 045
     Dates: start: 20190812
  4. LEVETIRACETAM. [Concomitant]
     Active Substance: LEVETIRACETAM
     Dosage: 2 TIMES A DAY 1 TABLET
     Route: 048
     Dates: start: 20190815
  5. MIRTAZAPINE. [Suspect]
     Active Substance: MIRTAZAPINE
     Indication: DEPRESSION
     Dosage: 1 TIME A DAY 0.5 TABLET
     Route: 048
     Dates: start: 20190808, end: 201908
  6. IBUPROFEN. [Concomitant]
     Active Substance: IBUPROFEN
     Dosage: 3 TIMES A DAY 1 TABLET
     Route: 048
     Dates: start: 20131024

REACTIONS (1)
  - Epilepsy [Recovering/Resolving]

NARRATIVE: CASE EVENT DATE: 201908
